FAERS Safety Report 6311572-4 (Version None)
Quarter: 2009Q3

REPORT INFORMATION
  Report Type: 
  Country: None (occurrence: None)
  Receive Date: 20090813
  Receipt Date: 20090813
  Transmission Date: 20100115
  Serious: Yes (Other)
  Sender: FDA-Public Use
  Company Number: None

PATIENT
  Age: 17 Year
  Sex: Male
  Weight: 54.8852 kg

DRUGS (2)
  1. XANAX [Suspect]
     Indication: ANXIETY
     Dosage: 0.25 MG ONCE BID PO
     Route: 048
     Dates: start: 20090722
  2. XANAX [Suspect]
     Indication: ANXIETY
     Dosage: 0.25 MG ONCE BID PO
     Route: 048
     Dates: start: 20090723

REACTIONS (3)
  - ANGER [None]
  - ANXIETY [None]
  - PRODUCT SUBSTITUTION ISSUE [None]
